FAERS Safety Report 7889321-8 (Version None)
Quarter: 2011Q4

REPORT INFORMATION
  Report Type: 
  Country: None (occurrence: None)
  Receive Date: 20111103
  Receipt Date: 20111026
  Transmission Date: 20120403
  Serious: No
  Sender: FDA-Public Use
  Company Number: JP-B.I. PHARMACEUTICALS,INC./RIDGEFIELD-2011-BP-18621NB

PATIENT
  Sex: Male
  Weight: 87.2 kg

DRUGS (6)
  1. NITROL [Concomitant]
     Indication: CARDIAC FAILURE CHRONIC
     Route: 065
     Dates: start: 19951001
  2. ASPIRIN [Concomitant]
     Indication: ATRIAL FIBRILLATION
     Dosage: 100 MG
     Route: 065
     Dates: start: 19951001
  3. PRADAXA [Suspect]
     Indication: ATRIAL FIBRILLATION
     Dosage: 300 MG
     Route: 048
     Dates: start: 20110601, end: 20110808
  4. EXFORGE [Concomitant]
     Indication: HYPERTENSION
     Route: 065
     Dates: start: 20100615
  5. DIGOXIN [Concomitant]
     Indication: CARDIAC FAILURE CHRONIC
     Dosage: 0.25 MG
     Route: 065
     Dates: start: 19951001
  6. TRICHLORMETHIAZIDE [Concomitant]
     Indication: HYPERTENSION
     Route: 065
     Dates: start: 19951001

REACTIONS (2)
  - GASTROOESOPHAGEAL REFLUX DISEASE [None]
  - MALAISE [None]
